FAERS Safety Report 12989448 (Version 1)
Quarter: 2016Q4

REPORT INFORMATION
  Report Type: Report from Study
  Country: US (occurrence: US)
  Receive Date: 20161201
  Receipt Date: 20161201
  Transmission Date: 20170207
  Serious: Yes (Other)
  Sender: FDA-Public Use
  Company Number: US-CLINIGEN GROUP PLC/ CLINIGEN HEALTHCARE LTD-E2B_00001369

PATIENT
  Age: 58 Year
  Sex: Male

DRUGS (2)
  1. AMIFOSTINE. [Suspect]
     Active Substance: AMIFOSTINE
     Route: 042
  2. AMIFOSTINE. [Suspect]
     Active Substance: AMIFOSTINE
     Indication: PRODUCT USED FOR UNKNOWN INDICATION
     Route: 042

REACTIONS (1)
  - Metastases to lung [Unknown]
